FAERS Safety Report 8623478-6 (Version None)
Quarter: 2012Q3

REPORT INFORMATION
  Report Type: 
  Country: None (occurrence: None)
  Receive Date: 20120824
  Receipt Date: 20120824
  Transmission Date: 20120928
  Serious: Yes (Other)
  Sender: FDA-Public Use
  Company Number: None

PATIENT
  Age: 57 Year
  Sex: Female

DRUGS (1)
  1. PROMETHAZINE [Suspect]
     Indication: NAUSEA
     Dosage: 25MG ONCE IM
     Route: 030
     Dates: start: 20120707, end: 20120707

REACTIONS (2)
  - PAIN IN EXTREMITY [None]
  - MUSCLE RUPTURE [None]
